FAERS Safety Report 16029116 (Version 1)
Quarter: 2019Q2

REPORT INFORMATION
  Report Type: Spontaneous
  Country: US (occurrence: US)
  Receive Date: 20190302
  Receipt Date: 20190302
  Transmission Date: 20190711
  Serious: Yes (Other)
  Sender: FDA-Public Use
  Company Number: None

PATIENT
  Age: 25 Year
  Sex: Female
  Weight: 54 kg

DRUGS (4)
  1. MULTIVITAMIN COMPLEX WITH OMEGA-3/FISH OIL [Concomitant]
  2. ARMODAFINIL 250 MG TABLET [Suspect]
     Active Substance: ARMODAFINIL
     Indication: SLEEP DISORDER
     Dosage: ?          QUANTITY:.5 TABLET(S);?
     Route: 048
     Dates: start: 20180902
  3. VITAMIN B12 [Concomitant]
     Active Substance: CYANOCOBALAMIN
  4. FERRITIN [Concomitant]
     Active Substance: FERRITIN

REACTIONS (12)
  - Myofascial pain syndrome [None]
  - Ear congestion [None]
  - Dysphagia [None]
  - Headache [None]
  - Dyspnoea [None]
  - Ear pain [None]
  - Tinnitus [None]
  - Lymphadenopathy [None]
  - Sinus pain [None]
  - Muscle tightness [None]
  - Swelling face [None]
  - Temporomandibular joint syndrome [None]

NARRATIVE: CASE EVENT DATE: 20180904
